FAERS Safety Report 17228137 (Version 1)
Quarter: 2020Q1

REPORT INFORMATION
  Report Type: Spontaneous
  Country: DE (occurrence: DE)
  Receive Date: 20200103
  Receipt Date: 20200103
  Transmission Date: 20200409
  Serious: Yes (Disabling, Other)
  Sender: FDA-Public Use
  Company Number: DE-TEVA-2019-DE-1160017

PATIENT
  Age: 46 Year
  Sex: Male

DRUGS (2)
  1. INSULIN [Concomitant]
     Active Substance: INSULIN NOS
     Dosage: DOSE AS REQIRED, QD
     Route: 058
  2. LOSARTAN POTASSIUM. [Suspect]
     Active Substance: LOSARTAN POTASSIUM
     Dosage: 50 MILLIGRAM DAILY; 50 MG, QD
     Route: 050

REACTIONS (3)
  - Febrile neutropenia [Recovered/Resolved]
  - Spinal fracture [Recovered/Resolved with Sequelae]
  - Staphylococcal infection [Recovered/Resolved]

NARRATIVE: CASE EVENT DATE: 20190524
